FAERS Safety Report 18349649 (Version 5)
Quarter: 2020Q4

REPORT INFORMATION
  Report Type: Spontaneous
  Country: CA (occurrence: CA)
  Receive Date: 20201006
  Receipt Date: 20201204
  Transmission Date: 20210114
  Serious: Yes (Hospitalization, Other)
  Sender: FDA-Public Use
  Company Number: CA-JNJFOC-A-NJ2019-196138

PATIENT
  Age: 69 Year
  Sex: Female
  Weight: 81 kg

DRUGS (22)
  1. UPTRAVI [Suspect]
     Active Substance: SELEXIPAG
     Route: 048
     Dates: end: 202009
  2. TRACLEER [Suspect]
     Active Substance: BOSENTAN
     Indication: PULMONARY ARTERIAL HYPERTENSION
     Dosage: 250 MG, QD
     Route: 048
     Dates: start: 2012
  3. UPTRAVI [Suspect]
     Active Substance: SELEXIPAG
     Indication: PULMONARY ARTERIAL HYPERTENSION
     Dosage: 400 MCG, QD
     Route: 048
     Dates: start: 20190902, end: 20190908
  4. UPTRAVI [Suspect]
     Active Substance: SELEXIPAG
     Dosage: 800 MCG, QD
     Route: 048
     Dates: start: 20190909, end: 20190915
  5. LASIX [Concomitant]
     Active Substance: FUROSEMIDE
  6. VITAMIN B12 [Concomitant]
     Active Substance: CYANOCOBALAMIN
  7. URSODIOL. [Concomitant]
     Active Substance: URSODIOL
  8. PROZAC [Concomitant]
     Active Substance: FLUOXETINE HYDROCHLORIDE
  9. OMEGA 3 [Concomitant]
     Active Substance: OMEGA-3 FATTY ACIDS
  10. UPTRAVI [Suspect]
     Active Substance: SELEXIPAG
     Route: 048
     Dates: start: 20191125, end: 20200320
  11. UPTRAVI [Suspect]
     Active Substance: SELEXIPAG
     Dosage: 1200 MCG, QD
     Route: 048
     Dates: start: 20190916, end: 20190922
  12. UPTRAVI [Suspect]
     Active Substance: SELEXIPAG
     Dosage: 1600 MCG, QD
     Route: 048
     Dates: start: 20190923, end: 20190929
  13. UPTRAVI [Suspect]
     Active Substance: SELEXIPAG
     Route: 048
     Dates: start: 20200321
  14. ADCIRCA [Suspect]
     Active Substance: TADALAFIL
     Indication: PULMONARY ARTERIAL HYPERTENSION
     Dosage: 40 MG
     Route: 065
     Dates: end: 2020
  15. LANSOPRAZOLE. [Concomitant]
     Active Substance: LANSOPRAZOLE
  16. MIRABEGRON [Concomitant]
     Active Substance: MIRABEGRON
  17. VITAMIN D [Concomitant]
     Active Substance: VITAMIN D NOS
  18. UPTRAVI [Suspect]
     Active Substance: SELEXIPAG
     Dosage: 2000 MCG, QD
     Route: 048
     Dates: start: 20190930, end: 20191114
  19. CRESTOR [Concomitant]
     Active Substance: ROSUVASTATIN CALCIUM
  20. RESTASIS [Concomitant]
     Active Substance: CYCLOSPORINE
  21. DEXAMETHASONE. [Concomitant]
     Active Substance: DEXAMETHASONE
  22. LOTEMAX [Concomitant]
     Active Substance: LOTEPREDNOL ETABONATE
     Route: 047

REACTIONS (40)
  - Fluid retention [Recovering/Resolving]
  - Vomiting [Recovered/Resolved]
  - Escherichia bacteraemia [Recovering/Resolving]
  - Kidney infection [Recovering/Resolving]
  - Body temperature abnormal [Not Recovered/Not Resolved]
  - Gastric haemorrhage [Recovered/Resolved]
  - Hepatic cirrhosis [Unknown]
  - Malaise [Recovered/Resolved]
  - Blood count abnormal [Unknown]
  - Body temperature increased [Recovering/Resolving]
  - Hepatic cirrhosis [Unknown]
  - Faeces soft [Recovered/Resolved]
  - Musculoskeletal stiffness [Recovered/Resolved]
  - Hospitalisation [Unknown]
  - Gastric varices [Not Recovered/Not Resolved]
  - Portal hypertensive gastropathy [Unknown]
  - Peritonitis bacterial [Recovered/Resolved]
  - Feeling abnormal [Recovered/Resolved]
  - Sepsis [Not Recovered/Not Resolved]
  - Hypotension [Recovered/Resolved with Sequelae]
  - Faeces discoloured [Not Recovered/Not Resolved]
  - Nausea [Recovered/Resolved]
  - Catheterisation cardiac [Unknown]
  - Hepatorenal syndrome [Recovered/Resolved]
  - Polyuria [Recovering/Resolving]
  - Packed red blood cell transfusion [Recovered/Resolved]
  - Frequent bowel movements [Recovering/Resolving]
  - Gastric ulcer [Not Recovered/Not Resolved]
  - Ascites [Unknown]
  - Abdominal cavity drainage [Recovering/Resolving]
  - Gastrointestinal haemorrhage [Recovered/Resolved]
  - Diarrhoea [Not Recovered/Not Resolved]
  - Anaemia [Recovered/Resolved]
  - Dialysis hypotension [Recovered/Resolved]
  - Urinary tract infection enterococcal [Recovered/Resolved]
  - Headache [Not Recovered/Not Resolved]
  - Abdominal pain [Not Recovered/Not Resolved]
  - Pain [Not Recovered/Not Resolved]
  - Dizziness [Recovered/Resolved]
  - Oedema [Not Recovered/Not Resolved]

NARRATIVE: CASE EVENT DATE: 20190930
